FAERS Safety Report 7626112-7 (Version None)
Quarter: 2011Q3

REPORT INFORMATION
  Report Type: 
  Country: None (occurrence: None)
  Receive Date: 20110701
  Receipt Date: 20100831
  Transmission Date: 20111222
  Serious: No
  Sender: FDA-Public Use
  Company Number: 7016419

PATIENT
  Age: 33 Year
  Sex: Male

DRUGS (3)
  1. REBIF [Suspect]
     Indication: MULTIPLE SCLEROSIS
     Dosage: 8.8 MCG, 3 IN 1 WK, SUBCUTANEOUS ;3 IN 1 D
     Route: 058
     Dates: start: 20100818
  2. REBIF [Suspect]
     Indication: PREMEDICATION
     Dosage: 8.8 MCG, 3 IN 1 WK, SUBCUTANEOUS ;3 IN 1 D
     Route: 058
     Dates: start: 20100818
  3. ALEVE [Concomitant]

REACTIONS (1)
  - DIZZINESS [None]
